FAERS Safety Report 8215662 (Version 9)
Quarter: 2014Q2

REPORT INFORMATION
  Report Type: Spontaneous
  Country: US (occurrence: US)
  Receive Date: 20111031
  Receipt Date: 20140624
  Transmission Date: 20141212
  Serious: Yes (Hospitalization)
  Sender: FDA-Public Use
  Company Number: US-GLAXOSMITHKLINE-A0950896A

PATIENT
  Age: 32 Year
  Sex: Female
  Weight: 100 kg

DRUGS (13)
  1. FLOLAN [Suspect]
     Indication: PULMONARY ARTERIAL HYPERTENSION
     Dosage: 40NGKM CONTINUOUS
     Route: 042
     Dates: start: 20080502
  2. PATANASE [Concomitant]
  3. REVATIO [Concomitant]
     Dosage: 40MG THREE TIMES PER DAY
  4. CLARITIN [Concomitant]
     Dosage: 10MG PER DAY
  5. LASIX [Concomitant]
     Dosage: 40MG PER DAY
  6. COUMADIN [Concomitant]
  7. POTASSIUM [Concomitant]
     Dosage: 20MEQ PER DAY
  8. CITALOPRAM [Concomitant]
     Dosage: 10MG PER DAY
  9. DIGOXIN [Concomitant]
     Dosage: 250MCG PER DAY
  10. FAMOTIDINE [Concomitant]
     Dosage: 40MG PER DAY
  11. DOCUSATE [Concomitant]
     Dosage: 250MG PER DAY
  12. LETAIRIS [Concomitant]
     Dosage: 10MG PER DAY
  13. LORTAB [Concomitant]

REACTIONS (7)
  - Pneumothorax [Recovered/Resolved]
  - Investigation [Recovered/Resolved]
  - Lung disorder [Recovered/Resolved]
  - Pain in jaw [Recovered/Resolved]
  - Flushing [Recovered/Resolved]
  - Sinusitis [Unknown]
  - Pneumonia [Unknown]
